FAERS Safety Report 8332819-9 (Version None)
Quarter: 2012Q1

REPORT INFORMATION
  Report Type: 
  Country: None (occurrence: None)
  Receive Date: 20120327
  Receipt Date: 20101124
  Transmission Date: 20120608
  Serious: Yes (Hospitalization)
  Sender: FDA-Public Use
  Company Number: PHEH2010US02514

PATIENT
  Sex: Female

DRUGS (5)
  1. SUDAFED 12 HOUR [Concomitant]
  2. CIPRO [Concomitant]
  3. IMITREX ^CERENEX^ (SUMATRIPTAN SUCCINATE) [Concomitant]
  4. GLEEVEC [Suspect]
     Indication: CHRONIC MYELOID LEUKAEMIA
     Dosage: 400 MG,QD, ORAL
     Route: 048
     Dates: start: 20050101
  5. NORTRIPTYLINE HCL [Concomitant]

REACTIONS (4)
  - SINUSITIS [None]
  - VISION BLURRED [None]
  - HEADACHE [None]
  - DIZZINESS [None]
